FAERS Safety Report 4688262-7 (Version None)
Quarter: 2005Q2

REPORT INFORMATION
  Report Type: 
  Country: None (occurrence: None)
  Receive Date: 20050610
  Receipt Date: 20030910
  Transmission Date: 20051028
  Serious: Yes (Hospitalization, Other)
  Sender: FDA-Public Use
  Company Number: US-MERCK-0309USA01194

PATIENT
  Age: 55 Year
  Sex: Female

DRUGS (5)
  1. VIOXX [Suspect]
     Route: 048
     Dates: start: 19990101, end: 20001023
  2. VIOXX [Suspect]
     Route: 065
     Dates: start: 20010418
  3. BUSPAR [Concomitant]
     Route: 065
  4. ZOLOFT [Concomitant]
     Route: 065
  5. CLARITIN [Concomitant]
     Route: 065

REACTIONS (57)
  - ANAEMIA [None]
  - ANGINA PECTORIS [None]
  - ARTHRALGIA [None]
  - ATELECTASIS [None]
  - BACK PAIN [None]
  - BLOOD ALKALINE PHOSPHATASE INCREASED [None]
  - BLOOD CHOLESTEROL INCREASED [None]
  - BLOOD PRESSURE DECREASED [None]
  - BODY TEMPERATURE INCREASED [None]
  - BREATH SOUNDS DECREASED [None]
  - BRONCHITIS [None]
  - BRONCHITIS ACUTE [None]
  - CHEST PAIN [None]
  - CHRONIC OBSTRUCTIVE PULMONARY DISEASE [None]
  - COAGULOPATHY [None]
  - CORONARY ARTERY ATHEROSCLEROSIS [None]
  - CRYING [None]
  - DEEP VEIN THROMBOSIS [None]
  - DEPRESSION [None]
  - DIAPHRAGMATIC DISORDER [None]
  - DYSLIPIDAEMIA [None]
  - DYSPNOEA [None]
  - EMPYEMA [None]
  - HAEMATOCRIT DECREASED [None]
  - HAEMOPTYSIS [None]
  - HAEMOTHORAX [None]
  - HEART RATE INCREASED [None]
  - HYPERHIDROSIS [None]
  - HYPERTENSION [None]
  - INTERNATIONAL NORMALISED RATIO DECREASED [None]
  - INTERNATIONAL NORMALISED RATIO INCREASED [None]
  - LOBAR PNEUMONIA [None]
  - MUSCLE SPASMS [None]
  - NASOPHARYNGITIS [None]
  - NIGHT SWEATS [None]
  - PLATELET COUNT INCREASED [None]
  - PLEURAL EFFUSION [None]
  - PLEURAL FIBROSIS [None]
  - PLEURISY [None]
  - PLEURITIC PAIN [None]
  - PRODUCTIVE COUGH [None]
  - PULMONARY ARTERY THROMBOSIS [None]
  - PULMONARY EMBOLISM [None]
  - PULMONARY HAEMATOMA [None]
  - PULMONARY INFARCTION [None]
  - PULMONARY THROMBOSIS [None]
  - PYREXIA [None]
  - RED BLOOD CELL SEDIMENTATION RATE INCREASED [None]
  - RESPIRATORY RATE INCREASED [None]
  - RHEUMATOID ARTHRITIS [None]
  - SPUTUM DISCOLOURED [None]
  - THROMBOCYTOPENIC PURPURA [None]
  - VASCULITIS [None]
  - VIRAL INFECTION [None]
  - WEIGHT DECREASED [None]
  - WEIGHT INCREASED [None]
  - WHEEZING [None]
